FAERS Safety Report 20205128 (Version 1)
Quarter: 2021Q4

REPORT INFORMATION
  Report Type: Spontaneous
  Country: US (occurrence: None)
  Receive Date: 20211220
  Receipt Date: 20211220
  Transmission Date: 20220303
  Serious: No
  Sender: FDA-Public Use
  Company Number: US-MDD US Operations-SUP202107-001326

PATIENT
  Age: 25 Year
  Sex: Male
  Weight: 71.66 kg

DRUGS (6)
  1. OXTELLAR XR [Suspect]
     Active Substance: OXCARBAZEPINE
     Indication: Epilepsy
     Dosage: 1200 MILLIGRAM/ 3 PILLS
     Dates: start: 20150218
  2. OXTELLAR XR [Suspect]
     Active Substance: OXCARBAZEPINE
     Route: 048
  3. OXTELLAR XR [Suspect]
     Active Substance: OXCARBAZEPINE
  4. OXTELLAR XR [Suspect]
     Active Substance: OXCARBAZEPINE
     Dosage: 1500 MG
  5. MODERNA COVID-19 VACCINE [Concomitant]
     Active Substance: ELASOMERAN
     Dosage: NOT PROVIDED
  6. TRILEPTAL [Concomitant]
     Active Substance: OXCARBAZEPINE
     Dosage: NOT PROVIDED

REACTIONS (2)
  - Drug level decreased [Unknown]
  - Drug ineffective [Unknown]

NARRATIVE: CASE EVENT DATE: 20210101
